FAERS Safety Report 5091111-9 (Version None)
Quarter: 2006Q3

REPORT INFORMATION
  Report Type: 
  Country: None (occurrence: None)
  Receive Date: 20060727
  Receipt Date: 20060330
  Transmission Date: 20061208
  Serious: Yes (Other)
  Sender: FDA-Public Use
  Company Number: 2006045397

PATIENT
  Age: 53 Year
  Sex: Female
  Weight: 73.4827 kg

DRUGS (1)
  1. LYRICA [Suspect]
     Indication: NEURALGIA
     Dosage: 350 MG (1 D)
     Dates: start: 20060126

REACTIONS (1)
  - PALPITATIONS [None]
